FAERS Safety Report 5669078-1 (Version None)
Quarter: 2008Q1

REPORT INFORMATION
  Report Type: 
  Country: None (occurrence: None)
  Receive Date: 20080317
  Receipt Date: 20080310
  Transmission Date: 20080703
  Serious: Yes (Other)
  Sender: FDA-Public Use
  Company Number: JP-AVENTIS-200812247GDDC

PATIENT
  Age: 28 Year
  Sex: Female

DRUGS (7)
  1. ISCOTIN                            /00030201/ [Suspect]
     Indication: PULMONARY TUBERCULOSIS
  2. RIFADIN [Suspect]
     Indication: PULMONARY TUBERCULOSIS
  3. CRAVIT [Suspect]
     Indication: PULMONARY TUBERCULOSIS
  4. PYRAMIDE [Suspect]
     Indication: PULMONARY TUBERCULOSIS
  5. CYCLOSERINE [Suspect]
     Indication: PULMONARY TUBERCULOSIS
  6. PARA AMINOSALICYLIC ACID [Suspect]
     Indication: PULMONARY TUBERCULOSIS
  7. ETHIONAMIDE [Suspect]
     Indication: PULMONARY TUBERCULOSIS

REACTIONS (4)
  - HEPATIC FUNCTION ABNORMAL [None]
  - NEUTROPHIL COUNT DECREASED [None]
  - SCOTOMA [None]
  - VISUAL DISTURBANCE [None]
